FAERS Safety Report 9923097 (Version 1)
Quarter: 2014Q1

REPORT INFORMATION
  Report Type: Spontaneous
  Country: US (occurrence: US)
  Receive Date: 20140225
  Receipt Date: 20140225
  Transmission Date: 20141002
  Serious: No
  Sender: FDA-Public Use
  Company Number: US-AMGEN-USASP2013069741

PATIENT
  Age: 46 Year
  Sex: Female

DRUGS (14)
  1. ENBREL [Suspect]
     Indication: PRODUCT USED FOR UNKNOWN INDICATION
     Dosage: 50 MG, QWK
     Route: 058
  2. JUNEL [Concomitant]
     Dosage: 1/20, UNK
  3. TYLENOL                            /00020001/ [Concomitant]
     Dosage: 500 MG/RR UNK, UNK
  4. ALEVE [Concomitant]
     Dosage: 200 MG, UNK
  5. TYLENOL PM [Concomitant]
     Dosage: 25-500 MG, UNK
  6. ACYCLOVIR                          /00587301/ [Concomitant]
     Dosage: 200 MG, UNK
  7. METHOTREXATE [Concomitant]
     Dosage: 2.5 MG, UNK
  8. CELEBREX [Concomitant]
     Dosage: 50 MG, UNK
  9. FOLIC ACID [Concomitant]
     Dosage: 20 MG, UNK
  10. PRILOSEC                           /00661201/ [Concomitant]
     Dosage: 20 MG, UNK
  11. MULTIVITAMINS, PLAIN [Concomitant]
     Dosage: UNK
  12. CALCIUM [Concomitant]
     Dosage: 500 UNK, UNK
  13. IRON [Concomitant]
     Dosage: 18 MG, UNK
  14. ADVIL                              /00044201/ [Concomitant]
     Dosage: 200 MG, UNK

REACTIONS (1)
  - Arthralgia [Unknown]
